FAERS Safety Report 14184588 (Version 2)
Quarter: 2017Q4

REPORT INFORMATION
  Report Type: Spontaneous
  Country: CA (occurrence: CA)
  Receive Date: 20171113
  Receipt Date: 20171114
  Transmission Date: 20180321
  Serious: Yes (Death)
  Sender: FDA-Public Use
  Company Number: CA-CELGENEUS-CAN-20171102800

PATIENT
  Age: 59 Year
  Sex: Male

DRUGS (1)
  1. REVLIMID [Suspect]
     Active Substance: LENALIDOMIDE
     Indication: NON-HODGKIN^S LYMPHOMA
     Dosage: 25 MILLIGRAM
     Route: 048
     Dates: start: 20171011

REACTIONS (1)
  - Death [Fatal]

NARRATIVE: CASE EVENT DATE: 20171107
